FAERS Safety Report 7674370-5 (Version None)
Quarter: 2011Q3

REPORT INFORMATION
  Report Type: 
  Country: None (occurrence: None)
  Receive Date: 20110810
  Receipt Date: 20050119
  Transmission Date: 20111222
  Serious: Yes (Death)
  Sender: FDA-Public Use
  Company Number: GB-BAXTER-2011BH025700

PATIENT
  Age: 66 Year
  Sex: Male

DRUGS (2)
  1. MESNA [Concomitant]
     Indication: PROPHYLAXIS
     Route: 042
  2. IFOSFAMIDE [Suspect]
     Indication: BONE SARCOMA
     Route: 065

REACTIONS (1)
  - NEUTROPENIC SEPSIS [None]
